FAERS Safety Report 11348439 (Version 2)
Quarter: 2015Q3

REPORT INFORMATION
  Report Type: Report from Study
  Country: JP (occurrence: JP)
  Receive Date: 20150806
  Receipt Date: 20150924
  Transmission Date: 20151125
  Serious: Yes (Other)
  Sender: FDA-Public Use
  Company Number: JP-JNJFOC-20130900597

PATIENT
  Age: 58 Year
  Sex: Male

DRUGS (15)
  1. EPZICOM [Suspect]
     Active Substance: ABACAVIR SULFATE\LAMIVUDINE
     Indication: HIV INFECTION
     Route: 048
     Dates: start: 20060529
  2. NORVIR [Suspect]
     Active Substance: RITONAVIR
     Indication: HIV INFECTION
     Route: 048
     Dates: start: 20060529, end: 20110526
  3. VITAMINS NOS [Concomitant]
     Active Substance: VITAMINS
     Indication: THROMBOANGIITIS OBLITERANS
     Route: 048
     Dates: start: 20100401
  4. AMLODIN [Concomitant]
     Active Substance: AMLODIPINE BESYLATE
     Indication: HYPERTENSION
     Route: 048
     Dates: start: 20120302, end: 20121221
  5. REYATAZ [Concomitant]
     Active Substance: ATAZANAVIR SULFATE
     Route: 048
     Dates: start: 20060529, end: 20100311
  6. LIPITOR [Concomitant]
     Active Substance: ATORVASTATIN CALCIUM
     Indication: HYPERLIPIDAEMIA
     Route: 048
     Dates: start: 20100401
  7. PREZISTA [Suspect]
     Active Substance: DARUNAVIR ETHANOLATE
     Indication: HIV INFECTION
     Dosage: 400 MG 2 TABLETS
     Route: 048
     Dates: start: 20100312
  8. AMLODIN [Concomitant]
     Active Substance: AMLODIPINE BESYLATE
     Indication: HYPERTENSION
     Route: 048
     Dates: start: 20110122, end: 20120301
  9. ZIAGEN [Concomitant]
     Active Substance: ABACAVIR SULFATE
     Route: 048
     Dates: start: 20050401, end: 20060528
  10. MICAMLO [Concomitant]
     Active Substance: AMLODIPINE BESYLATE\TELMISARTAN
     Indication: HYPERTENSION
     Route: 048
     Dates: start: 20131004
  11. NORVIR [Suspect]
     Active Substance: RITONAVIR
     Indication: HIV INFECTION
     Route: 048
     Dates: start: 20110527
  12. AMLODIN [Concomitant]
     Active Substance: AMLODIPINE BESYLATE
     Indication: HYPERTENSION
     Route: 048
     Dates: start: 20121222, end: 20131003
  13. ADALAT CC [Concomitant]
     Active Substance: NIFEDIPINE
     Indication: HYPERTENSION
     Route: 048
     Dates: start: 20100401, end: 20110121
  14. EPIVIR [Concomitant]
     Active Substance: LAMIVUDINE
     Route: 048
     Dates: start: 20050401, end: 20060528
  15. KALETRA [Concomitant]
     Active Substance: LOPINAVIR\RITONAVIR
     Route: 048
     Dates: start: 20050401, end: 20060528

REACTIONS (5)
  - Gastric ulcer [Not Recovered/Not Resolved]
  - Proteinuria [Not Recovered/Not Resolved]
  - Urine cytology abnormal [Unknown]
  - Cholelithiasis [Recovering/Resolving]
  - Gallbladder polyp [Recovering/Resolving]

NARRATIVE: CASE EVENT DATE: 20100423
